FAERS Safety Report 9360051 (Version 1)
Quarter: 2013Q2

REPORT INFORMATION
  Report Type: Spontaneous
  Country: CH (occurrence: CH)
  Receive Date: 20130621
  Receipt Date: 20130621
  Transmission Date: 20140414
  Serious: Yes (Death, Hospitalization)
  Sender: FDA-Public Use
  Company Number: CH-AMGEN-CHESP2013042724

PATIENT
  Age: 66 Year
  Sex: Female

DRUGS (9)
  1. PROLIA [Suspect]
     Indication: OSTEOPOROSIS
     Dosage: 60 MG, Q6MO
     Route: 058
     Dates: start: 20121106
  2. SIMPONI [Suspect]
     Indication: RHEUMATOID ARTHRITIS
     Dosage: 50 MG, QMO
     Route: 058
     Dates: start: 20121114, end: 20130124
  3. DAFALGAN [Concomitant]
  4. METHOTREXATE [Concomitant]
     Indication: RHEUMATOID ARTHRITIS
     Dosage: 12.5 MG, QWK
     Route: 058
     Dates: start: 20041116
  5. OMEPRAZOLE [Concomitant]
  6. MOTILIUM                           /00498201/ [Concomitant]
  7. LEXOTANIL [Concomitant]
  8. CALCIMAGON                         /00751501/ [Concomitant]
  9. FOLIC ACID [Concomitant]

REACTIONS (2)
  - Cerebral haemorrhage [Fatal]
  - Coma [Fatal]
